FAERS Safety Report 9659638 (Version 1)
Quarter: 2013Q4

REPORT INFORMATION
  Report Type: Report from Study
  Country: CA (occurrence: CA)
  Receive Date: 20131031
  Receipt Date: 20131031
  Transmission Date: 20140711
  Serious: Yes (Other)
  Sender: FDA-Public Use
  Company Number: CA-JNJFOC-20131016128

PATIENT
  Age: 54 Year
  Sex: Female
  Weight: 73 kg

DRUGS (7)
  1. REMICADE [Suspect]
     Indication: RHEUMATOID ARTHRITIS
     Route: 042
     Dates: start: 20080226
  2. ESTROGEN [Concomitant]
     Route: 065
  3. CELEBREX [Concomitant]
     Route: 065
  4. ARAVA [Concomitant]
     Route: 065
  5. FOSAMAX [Concomitant]
     Route: 065
  6. PREDNISONE [Concomitant]
     Route: 048
  7. PREDNISONE [Concomitant]
     Route: 047

REACTIONS (2)
  - Uveitis [Not Recovered/Not Resolved]
  - Drug ineffective [Not Recovered/Not Resolved]
